FAERS Safety Report 10210749 (Version 1)
Quarter: 2014Q2

REPORT INFORMATION
  Report Type: Spontaneous
  Country: ES (occurrence: ES)
  Receive Date: 20140602
  Receipt Date: 20140602
  Transmission Date: 20141212
  Serious: Yes (Death)
  Sender: FDA-Public Use
  Company Number: PHHY2014ES066317

PATIENT
  Age: 43 Year
  Sex: Male

DRUGS (11)
  1. CICLOSPORIN [Suspect]
  2. TACROLIMUS [Suspect]
     Indication: PROPHYLAXIS AGAINST GRAFT VERSUS HOST DISEASE
     Route: 048
  3. MYCOPHENOLATE MOFETIL [Suspect]
  4. METHOTREXATE [Suspect]
     Indication: PROPHYLAXIS AGAINST GRAFT VERSUS HOST DISEASE
  5. TACROLIMUS [Suspect]
     Indication: PROPHYLAXIS AGAINST GRAFT VERSUS HOST DISEASE
     Dosage: 0.01 MG/KG, UNK
     Route: 042
  6. TACROLIMUS [Suspect]
     Dosage: 0.03 MG/KG, UNK
     Route: 042
  7. RITUXIMAB [Suspect]
     Dosage: 375 MG/M2, UNK
     Route: 042
  8. ANTIVIRALS [Concomitant]
     Indication: PROPHYLAXIS
  9. URSODEOXYCHOLIC ACID [Concomitant]
     Indication: PROPHYLAXIS
     Dosage: 600-900 MG, QD
     Route: 048
  10. ANTIBACTERIALS FOR SYSTEMIC USE [Concomitant]
     Indication: PROPHYLAXIS
  11. ANTIFUNGALS [Concomitant]
     Indication: PROPHYLAXIS

REACTIONS (10)
  - Respiratory failure [Fatal]
  - Gastrointestinal haemorrhage [Fatal]
  - Thrombotic microangiopathy [Fatal]
  - Red blood cell schistocytes present [Fatal]
  - Haemoglobin decreased [Fatal]
  - Blood lactate dehydrogenase increased [Fatal]
  - Thrombocytopenia [Fatal]
  - Graft versus host disease [Fatal]
  - Drug ineffective [Unknown]
  - Immunosuppressant drug level increased [Unknown]
